FAERS Safety Report 25311241 (Version 1)
Quarter: 2025Q2

REPORT INFORMATION
  Report Type: Other
  Country: DE (occurrence: DE)
  Receive Date: 20250514
  Receipt Date: 20250514
  Transmission Date: 20250716
  Serious: Yes (Disabling)
  Sender: MACLEODS
  Company Number: DE-DCGMA-25205077

PATIENT

DRUGS (3)
  1. LEVOFLOXACIN [Suspect]
     Active Substance: LEVOFLOXACIN
     Indication: Urosepsis
     Dosage: DAILY DOSE: 500 MG EVERY 1 DAY
     Route: 048
  2. LEVOFLOXACIN [Suspect]
     Active Substance: LEVOFLOXACIN
     Indication: Prostatitis
  3. Viacoram 7/5 [Concomitant]
     Indication: Essential hypertension
     Dosage: DAILY DOSE: 1 {DF} EVERY 1 DAY
     Route: 048

REACTIONS (3)
  - Hypoaesthesia [Not Recovered/Not Resolved]
  - Sensory level abnormal [Not Recovered/Not Resolved]
  - Muscular weakness [Not Recovered/Not Resolved]

NARRATIVE: CASE EVENT DATE: 20250315
